FAERS Safety Report 12830372 (Version 1)
Quarter: 2016Q4

REPORT INFORMATION
  Report Type: Spontaneous
  Country: US (occurrence: US)
  Receive Date: 20161007
  Receipt Date: 20161007
  Transmission Date: 20170207
  Serious: No
  Sender: FDA-Public Use
  Company Number: US-SA-2016SA127312

PATIENT
  Age: 54 Year
  Sex: Female

DRUGS (11)
  1. LISINOPRIL. [Concomitant]
     Active Substance: LISINOPRIL
  2. LASIX [Concomitant]
     Active Substance: FUROSEMIDE
  3. AUBAGIO [Suspect]
     Active Substance: TERIFLUNOMIDE
     Indication: MULTIPLE SCLEROSIS
     Route: 048
     Dates: start: 20160610
  4. VALIUM [Concomitant]
     Active Substance: DIAZEPAM
  5. MORPHINE [Concomitant]
     Active Substance: MORPHINE
  6. VICODIN [Concomitant]
     Active Substance: ACETAMINOPHEN\HYDROCODONE BITARTRATE
  7. LORATADINE. [Concomitant]
     Active Substance: LORATADINE
  8. CLONIDINE. [Concomitant]
     Active Substance: CLONIDINE
  9. POTASSIUM [Concomitant]
     Active Substance: POTASSIUM
  10. OXYCODONE [Concomitant]
     Active Substance: OXYCODONE
  11. PROTONIX [Concomitant]
     Active Substance: PANTOPRAZOLE SODIUM

REACTIONS (1)
  - Intentional product use issue [Unknown]
